FAERS Safety Report 5926273-1 (Version None)
Quarter: 2008Q4

REPORT INFORMATION
  Report Type: 
  Country: None (occurrence: None)
  Receive Date: 20081022
  Receipt Date: 20081013
  Transmission Date: 20090506
  Serious: Yes (Other)
  Sender: FDA-Public Use
  Company Number: US-BAYER-200832872NA

PATIENT
  Age: 37 Year
  Sex: Female
  Weight: 63 kg

DRUGS (5)
  1. BETASERON [Suspect]
     Indication: RELAPSING-REMITTING MULTIPLE SCLEROSIS
     Dosage: TOTAL DAILY DOSE: 8 MIU
     Route: 058
     Dates: start: 19951006, end: 20071223
  2. BACLOFEN [Concomitant]
     Dosage: TOTAL DAILY DOSE: 60 MG
  3. MACROBID [Concomitant]
     Dosage: TOTAL DAILY DOSE: 100 MG
  4. TYSABRI [Concomitant]
     Dates: start: 20080301
  5. BALLERINA TEA [Concomitant]
     Indication: CONSTIPATION

REACTIONS (1)
  - PITUITARY TUMOUR BENIGN [None]
